FAERS Safety Report 6838924-8 (Version None)
Quarter: 2010Q3

REPORT INFORMATION
  Report Type: 
  Country: None (occurrence: None)
  Receive Date: 20100713
  Receipt Date: 20070729
  Transmission Date: 20110219
  Serious: No
  Sender: FDA-Public Use
  Company Number: US-PFIZER INC-2007040646

PATIENT
  Sex: Male
  Weight: 84.1 kg

DRUGS (6)
  1. CHANTIX [Suspect]
     Indication: SMOKING CESSATION THERAPY
     Dates: start: 20070401
  2. PLAVIX [Concomitant]
  3. FOLIC ACID [Concomitant]
  4. CRESTOR [Concomitant]
  5. ADVAIR DISKUS 100/50 [Concomitant]
  6. DRUG, UNSPECIFIED [Concomitant]

REACTIONS (1)
  - NAUSEA [None]
